FAERS Safety Report 20318207 (Version 4)
Quarter: 2022Q2

REPORT INFORMATION
  Report Type: Report from Study
  Country: NL (occurrence: NL)
  Receive Date: 20220110
  Receipt Date: 20220506
  Transmission Date: 20220721
  Serious: Yes (Other)
  Sender: FDA-Public Use
  Company Number: NL-AMGEN-NLDSL2021184080

PATIENT
  Age: 68 Year
  Sex: Male

DRUGS (15)
  1. ENZALUTAMIDE [Suspect]
     Active Substance: ENZALUTAMIDE
     Indication: Product used for unknown indication
     Dosage: UNK UNK, UNKNOWN FREQ.
     Route: 065
     Dates: start: 20211102
  2. XGEVA [Suspect]
     Active Substance: DENOSUMAB
     Indication: Prophylaxis
     Dosage: 120 MG, EVERY 4 WEEKS (120 MG/1.7ML)
     Route: 058
     Dates: start: 20201006
  3. XGEVA [Suspect]
     Active Substance: DENOSUMAB
     Route: 058
  4. XGEVA [Suspect]
     Active Substance: DENOSUMAB
     Dosage: 120 MG, EVERY 4 WEEKS (120 MG/1.7 ML)
     Route: 058
  5. CALCIUM [Suspect]
     Active Substance: CALCIUM
     Indication: Product used for unknown indication
     Dosage: UNK UNK, UNKNOWN FREQ.
     Route: 065
  6. AMOXICILLIN\CLAVULANIC ACID [Concomitant]
     Active Substance: AMOXICILLIN\CLAVULANIC ACID
     Indication: Product used for unknown indication
     Dosage: 500/125MG, THRICE DAILY
     Route: 065
  7. DALTEPARIN [Concomitant]
     Active Substance: DALTEPARIN
     Indication: Product used for unknown indication
     Dosage: 18000IE=0,72ML (25.000IE/ML), ONCE DAILY
     Route: 065
  8. CALCIUM CARBONATE\CHOLECALCIFEROL [Concomitant]
     Active Substance: CALCIUM CARBONATE\CHOLECALCIFEROL
     Indication: Product used for unknown indication
     Dosage: (2.5G/880IE (1000MG CA)), ONCE DAILY
     Route: 065
  9. EDOXABAN [Concomitant]
     Active Substance: EDOXABAN
     Indication: Product used for unknown indication
     Route: 065
  10. NADROPARIN [Concomitant]
     Active Substance: NADROPARIN
     Indication: Product used for unknown indication
     Dosage: (15200IE=0,8ML (19000IE/ML), UNKNOWN FREQ.
     Route: 065
  11. FLUCLOXACILLIN [Concomitant]
     Active Substance: FLUCLOXACILLIN
     Indication: Product used for unknown indication
     Route: 065
  12. GOSERELIN [Concomitant]
     Active Substance: GOSERELIN
     Indication: Product used for unknown indication
     Route: 065
  13. FUSIDIC ACID [Concomitant]
     Active Substance: FUSIDIC ACID
     Indication: Product used for unknown indication
     Dosage: (20MG/G 3D-CR ), UNKNOWN FREQ.
     Route: 065
  14. MICONAZOLE NITRATE [Concomitant]
     Active Substance: MICONAZOLE NITRATE
     Indication: Product used for unknown indication
     Route: 065
  15. FLUCONAZOLE [Concomitant]
     Active Substance: FLUCONAZOLE
     Indication: Product used for unknown indication
     Route: 065

REACTIONS (18)
  - Erysipelas [Unknown]
  - Metastases to bone [Not Recovered/Not Resolved]
  - Kidney congestion [Not Recovered/Not Resolved]
  - Skull fractured base [Not Recovered/Not Resolved]
  - Dysphagia [Not Recovered/Not Resolved]
  - Tongue fungal infection [Not Recovered/Not Resolved]
  - Tongue disorder [Not Recovered/Not Resolved]
  - Face injury [Not Recovered/Not Resolved]
  - Feeding disorder [Not Recovered/Not Resolved]
  - Sluggishness [Not Recovered/Not Resolved]
  - Blood calcium increased [Not Recovered/Not Resolved]
  - Weight decreased [Not Recovered/Not Resolved]
  - Myalgia [Not Recovered/Not Resolved]
  - Decreased appetite [Not Recovered/Not Resolved]
  - Contusion [Not Recovered/Not Resolved]
  - Fall [Not Recovered/Not Resolved]
  - Headache [Not Recovered/Not Resolved]
  - Fatigue [Not Recovered/Not Resolved]

NARRATIVE: CASE EVENT DATE: 20211101
